FAERS Safety Report 8460722-2 (Version None)
Quarter: 2012Q2

REPORT INFORMATION
  Report Type: 
  Country: None (occurrence: None)
  Receive Date: 20120622
  Receipt Date: 20120614
  Transmission Date: 20120825
  Serious: Yes (Hospitalization)
  Sender: FDA-Public Use
  Company Number: US-BAXTER-2012BAX008821

PATIENT
  Sex: Female

DRUGS (2)
  1. GAMMAGARD LIQUID [Suspect]
     Indication: CHRONIC INFLAMMATORY DEMYELINATING POLYRADICULONEUROPATHY
     Route: 042
  2. GAMMAGARD LIQUID [Suspect]

REACTIONS (7)
  - BLADDER DISCOMFORT [None]
  - BLADDER DYSFUNCTION [None]
  - ASTHENIA [None]
  - RENAL FAILURE [None]
  - BURNING SENSATION [None]
  - VOMITING [None]
  - DEHYDRATION [None]
